FAERS Safety Report 4716872-7 (Version None)
Quarter: 2005Q3

REPORT INFORMATION
  Report Type: 
  Country: None (occurrence: None)
  Receive Date: 20050719
  Receipt Date: 20050708
  Transmission Date: 20060218
  Serious: Yes (Other)
  Sender: FDA-Public Use
  Company Number: US-MERCK-0507USA01271

PATIENT
  Sex: Female

DRUGS (1)
  1. VIOXX [Suspect]
     Route: 048
     Dates: start: 20020901, end: 20041001

REACTIONS (3)
  - CEREBROVASCULAR ACCIDENT [None]
  - PARALYSIS [None]
  - TRANSIENT ISCHAEMIC ATTACK [None]
